FAERS Safety Report 13040234 (Version 1)
Quarter: 2016Q4

REPORT INFORMATION
  Report Type: Spontaneous
  Country: HR (occurrence: HR)
  Receive Date: 20161219
  Receipt Date: 20161219
  Transmission Date: 20170207
  Serious: Yes (Hospitalization)
  Sender: FDA-Public Use
  Company Number: HR-CELLTRION INC.-2016HR013625

PATIENT

DRUGS (1)
  1. INFLECTRA [Suspect]
     Active Substance: INFLIXIMAB-DYYB
     Indication: SERONEGATIVE ARTHRITIS
     Dosage: 3 MG/KG,  0, 2, 8 WEEKS
     Route: 042
     Dates: start: 20160121, end: 20160428

REACTIONS (2)
  - Proctalgia [Recovered/Resolved]
  - Anal abscess [Recovered/Resolved]

NARRATIVE: CASE EVENT DATE: 20160401
